FAERS Safety Report 14498371 (Version 1)
Quarter: 2018Q1

REPORT INFORMATION
  Report Type: Spontaneous
  Country: US (occurrence: US)
  Receive Date: 20180206
  Receipt Date: 20180206
  Transmission Date: 20180509
  Serious: Yes (Other)
  Sender: FDA-Public Use
  Company Number: None

PATIENT

DRUGS (1)
  1. NOREPINEPHRINE. [Suspect]
     Active Substance: NOREPINEPHRINE

REACTIONS (2)
  - Oedema [None]
  - Complication associated with device [None]
